FAERS Safety Report 24240201 (Version 3)
Quarter: 2024Q4

REPORT INFORMATION
  Report Type: Spontaneous
  Country: JP (occurrence: JP)
  Receive Date: 20240822
  Receipt Date: 20241008
  Transmission Date: 20250114
  Serious: Yes (Hospitalization)
  Sender: EISAI
  Company Number: JP-Eisai-202406063_LEN-RCC_P_1

PATIENT
  Age: 60 Year
  Sex: Male

DRUGS (33)
  1. LENVIMA [Suspect]
     Active Substance: LENVATINIB
     Indication: Renal cell carcinoma
     Route: 048
     Dates: start: 20240619, end: 20240710
  2. LENVIMA [Suspect]
     Active Substance: LENVATINIB
     Route: 048
     Dates: start: 20240801, end: 20240808
  3. KEYTRUDA [Suspect]
     Active Substance: PEMBROLIZUMAB
     Indication: Renal cell carcinoma
     Dosage: DOSE UNKNOWN
     Route: 041
     Dates: start: 20240620, end: 20240711
  4. KEYTRUDA [Suspect]
     Active Substance: PEMBROLIZUMAB
     Dosage: DOSE UNKNOWN
     Route: 041
     Dates: start: 20240801, end: 20240821
  5. LEVOTHYROXINE [Concomitant]
     Active Substance: LEVOTHYROXINE
     Indication: Rash
     Dosage: FREQUENCY UNKNOWN
     Route: 065
     Dates: start: 20240711
  6. LEVOTHYROXINE [Concomitant]
     Active Substance: LEVOTHYROXINE
     Dosage: FREQUENCY UNKNOWN
     Route: 065
     Dates: start: 20240718
  7. MIROGABALIN BESYLATE [Concomitant]
     Active Substance: MIROGABALIN BESYLATE
     Indication: Product used for unknown indication
     Dosage: FREQUENCY UNKNOWN
     Route: 065
     Dates: start: 20240619
  8. MIROGABALIN BESYLATE [Concomitant]
     Active Substance: MIROGABALIN BESYLATE
     Dosage: FREQUENCY UNKNOWN
     Route: 065
     Dates: start: 20240711
  9. MIROGABALIN BESYLATE [Concomitant]
     Active Substance: MIROGABALIN BESYLATE
     Dosage: FREQUENCY UNKNOWN
     Route: 065
     Dates: start: 20240718
  10. MIROGABALIN BESYLATE [Concomitant]
     Active Substance: MIROGABALIN BESYLATE
     Dosage: FREQUENCY UNKNOWN
     Route: 065
     Dates: start: 20240801
  11. ESOMEPRAZOLE [Concomitant]
     Active Substance: ESOMEPRAZOLE
     Indication: Product used for unknown indication
     Dosage: FREQUENCY WAS UNKNOWN
     Route: 065
     Dates: start: 20240619
  12. ESOMEPRAZOLE [Concomitant]
     Active Substance: ESOMEPRAZOLE
     Dosage: FREQUENCY WAS UNKNOWN
     Route: 065
     Dates: start: 20240711
  13. ESOMEPRAZOLE [Concomitant]
     Active Substance: ESOMEPRAZOLE
     Dosage: FREQUENCY WAS UNKNOWN
     Route: 065
     Dates: start: 20240718
  14. ESOMEPRAZOLE [Concomitant]
     Active Substance: ESOMEPRAZOLE
     Dosage: FREQUENCY WAS UNKNOWN
     Route: 065
     Dates: start: 20240801
  15. HEPARINOID [Concomitant]
     Indication: Product used for unknown indication
     Dosage: DOSE AND FREQUENCY WERE UNKNOWN
     Route: 003
     Dates: start: 20240711
  16. HEPARINOID [Concomitant]
     Dosage: DOSE AND FREQUENCY WERE UNKNOWN
     Route: 003
     Dates: start: 20240718
  17. HEPARINOID [Concomitant]
     Dosage: DOSE AND FREQUENCY WERE UNKNOWN
     Route: 003
     Dates: start: 20240801
  18. LOCOID [Concomitant]
     Active Substance: HYDROCORTISONE BUTYRATE
     Indication: Product used for unknown indication
     Dosage: DOSE AND FREQUENCY WERE UNKNOWN
     Route: 003
     Dates: start: 20240619
  19. LOCOID [Concomitant]
     Active Substance: HYDROCORTISONE BUTYRATE
     Dosage: DOSE AND FREQUENCY WERE UNKNOWN
     Route: 003
     Dates: start: 20240711
  20. LOCOID [Concomitant]
     Active Substance: HYDROCORTISONE BUTYRATE
     Dosage: DOSE AND FREQUENCY WERE UNKNOWN
     Route: 003
     Dates: start: 20240718
  21. LOCOID [Concomitant]
     Active Substance: HYDROCORTISONE BUTYRATE
     Dosage: DOSE AND FREQUENCY WERE UNKNOWN
     Route: 003
     Dates: start: 20240801
  22. GENTAMICIN [Concomitant]
     Active Substance: GENTAMICIN
     Indication: Product used for unknown indication
     Dosage: DOSE AND FREQUENCY WERE UNKNOWN
     Route: 003
     Dates: start: 20240711
  23. GENTAMICIN [Concomitant]
     Active Substance: GENTAMICIN
     Dosage: DOSE AND FREQUENCY WERE UNKNOWN
     Route: 003
     Dates: start: 20240718
  24. GENTAMICIN [Concomitant]
     Active Substance: GENTAMICIN
     Dosage: DOSE AND FREQUENCY WERE UNKNOWN
     Route: 003
     Dates: start: 20240801
  25. GLYCOSAMINOGLYCANS [Concomitant]
     Active Substance: GLYCOSAMINOGLYCANS
     Indication: Product used for unknown indication
     Dosage: DOSE AND FREQUENCY WERE UNKNOWN
     Route: 003
     Dates: start: 20240619
  26. AZILSARTAN KAMEDOXOMIL [Concomitant]
     Active Substance: AZILSARTAN KAMEDOXOMIL
     Indication: Product used for unknown indication
     Dosage: FREQUENCY WAS UNKNOWN
     Route: 065
     Dates: start: 20240619
  27. NAPROXEN [Concomitant]
     Active Substance: NAPROXEN
     Indication: Tumour associated fever
     Dosage: DOSE AND FREQUENCY WERE UNKNOWN
     Dates: start: 20240711
  28. NAPROXEN [Concomitant]
     Active Substance: NAPROXEN
     Dosage: DOSE AND FREQUENCY WERE UNKNOWN
     Dates: start: 20240718
  29. NAPROXEN [Concomitant]
     Active Substance: NAPROXEN
     Dosage: DOSE AND FREQUENCY WERE UNKNOWN
     Dates: start: 20240801
  30. NAPROXEN [Concomitant]
     Active Substance: NAPROXEN
     Dosage: DOSE AND FREQUENCY WERE UNKNOWN
     Dates: start: 20240619
  31. HACHIAZULE [SODIUM GUALENATE] [Concomitant]
     Indication: Product used for unknown indication
     Dosage: DOSE AND FREQUENCY WERE UNKNOWN
     Dates: start: 20240711
  32. HACHIAZULE [SODIUM GUALENATE] [Concomitant]
     Dosage: DOSE AND FREQUENCY WERE UNKNOWN
     Dates: start: 20240718
  33. HACHIAZULE [SODIUM GUALENATE] [Concomitant]
     Dosage: DOSE AND FREQUENCY WERE UNKNOWN
     Dates: start: 20240801

REACTIONS (2)
  - Pemphigoid [Recovered/Resolved]
  - Pyrexia [Recovered/Resolved]

NARRATIVE: CASE EVENT DATE: 20240809
